FAERS Safety Report 6669456-8 (Version None)
Quarter: 2010Q2

REPORT INFORMATION
  Report Type: 
  Country: None (occurrence: None)
  Receive Date: 20100406
  Receipt Date: 20100325
  Transmission Date: 20101027
  Serious: Yes (Other)
  Sender: FDA-Public Use
  Company Number: PHHY2010BR19351

PATIENT
  Sex: Male

DRUGS (4)
  1. FORASEQ [Suspect]
     Indication: ASTHMA
     Dosage: UNK
  2. AMOXICILLIN [Concomitant]
     Indication: PNEUMONIA
     Dosage: 500MG
  3. SALBUTAMOL SULFATE [Concomitant]
     Indication: COUGH
     Dosage: UNK
  4. DIPYRONE [Concomitant]
     Indication: PAIN
     Dosage: UNK

REACTIONS (7)
  - ABDOMINAL PAIN UPPER [None]
  - COUGH [None]
  - DYSPNOEA [None]
  - MALAISE [None]
  - PAIN [None]
  - PNEUMONIA [None]
  - TREATMENT NONCOMPLIANCE [None]
